FAERS Safety Report 5012124-9 (Version None)
Quarter: 2006Q2

REPORT INFORMATION
  Report Type: 
  Country: None (occurrence: None)
  Receive Date: 20060524
  Receipt Date: 20060515
  Transmission Date: 20061013
  Serious: Yes (Other)
  Sender: FDA-Public Use
  Company Number: 2006065531

PATIENT
  Sex: Female

DRUGS (2)
  1. PROVERA [Suspect]
     Indication: HORMONE REPLACEMENT THERAPY
     Dosage: 10 MG (10 MG,), ORAL
     Route: 048
     Dates: start: 19910120, end: 19960315
  2. PREMARIN [Suspect]
     Indication: HORMONE REPLACEMENT THERAPY
     Dosage: 0.625 MG (0.625 MG,), ORAL
     Route: 048
     Dates: start: 19910120, end: 19960315

REACTIONS (1)
  - BREAST CANCER FEMALE [None]
